FAERS Safety Report 10106252 (Version 2)
Quarter: 2014Q2

REPORT INFORMATION
  Report Type: Other
  Country: US (occurrence: US)
  Receive Date: 20140424
  Receipt Date: 20140605
  Transmission Date: 20141212
  Serious: Yes (Hospitalization, Other)
  Sender: FDA-Public Use
  Company Number: US-GSKPPD-2014GSK000975

PATIENT
  Age: 56 Year
  Sex: Male
  Weight: 133 kg

DRUGS (6)
  1. AVANDIA [Suspect]
     Indication: DIABETES MELLITUS
     Route: 048
     Dates: start: 2004
  2. ASPIRIN [Concomitant]
  3. ATENOLOL [Concomitant]
  4. CLOPIDOGREL [Concomitant]
  5. LISINOPRIL [Concomitant]
  6. ISOSORBIDE [Concomitant]

REACTIONS (2)
  - Cerebrovascular accident [None]
  - Angina pectoris [Recovered/Resolved]
